FAERS Safety Report 20122759 (Version 7)
Quarter: 2022Q2

REPORT INFORMATION
  Report Type: Spontaneous
  Country: JP (occurrence: JP)
  Receive Date: 20211128
  Receipt Date: 20220413
  Transmission Date: 20220721
  Serious: Yes (Hospitalization, Other)
  Sender: FDA-Public Use
  Company Number: JP-JNJFOC-20211146567

PATIENT
  Age: 68 Year
  Sex: Male
  Weight: 54 kg

DRUGS (16)
  1. OPSUMIT [Suspect]
     Active Substance: MACITENTAN
     Indication: Pulmonary arterial hypertension
     Route: 048
     Dates: start: 20200705
  2. UPTRAVI [Suspect]
     Active Substance: SELEXIPAG
     Indication: Pulmonary arterial hypertension
     Route: 048
  3. UPTRAVI [Suspect]
     Active Substance: SELEXIPAG
     Route: 048
     Dates: end: 2021
  4. UPTRAVI [Suspect]
     Active Substance: SELEXIPAG
     Route: 048
  5. UPTRAVI [Suspect]
     Active Substance: SELEXIPAG
     Route: 048
  6. UPTRAVI [Suspect]
     Active Substance: SELEXIPAG
     Route: 048
  7. UPTRAVI [Suspect]
     Active Substance: SELEXIPAG
     Route: 048
  8. UPTRAVI [Suspect]
     Active Substance: SELEXIPAG
     Route: 048
  9. UPTRAVI [Suspect]
     Active Substance: SELEXIPAG
     Route: 048
     Dates: start: 20210519, end: 20210519
  10. TADALAFIL [Suspect]
     Active Substance: TADALAFIL
     Indication: Pulmonary arterial hypertension
     Route: 048
  11. TADALAFIL [Suspect]
     Active Substance: TADALAFIL
     Route: 048
     Dates: start: 20210617
  12. AZOSEMIDE [Concomitant]
     Active Substance: AZOSEMIDE
     Indication: Cardiac failure
     Dosage: DOSE UNKNOWN
     Route: 048
  13. TOLVAPTAN [Concomitant]
     Active Substance: TOLVAPTAN
     Indication: Cardiac failure
     Dosage: DOSE UNKNOWN
     Route: 048
  14. EPLERENONE [Concomitant]
     Active Substance: EPLERENONE
     Dosage: DOSE UNKNOWN
     Route: 048
  15. TREPROSTINIL [Concomitant]
     Active Substance: TREPROSTINIL
     Indication: Pulmonary arterial hypertension
     Dosage: DOSE UNKNOWN
     Route: 058
     Dates: start: 20210520
  16. ADCIRCA [Concomitant]
     Active Substance: TADALAFIL
     Indication: Pulmonary arterial hypertension
     Route: 048
     Dates: end: 20210617

REACTIONS (6)
  - Shock symptom [Recovered/Resolved]
  - Pericardial effusion [Recovered/Resolved]
  - Shock [Recovered/Resolved]
  - Pulmonary arterial hypertension [Unknown]
  - Oedema peripheral [Recovered/Resolved]
  - Off label use [Unknown]

NARRATIVE: CASE EVENT DATE: 20210101
